FAERS Safety Report 8965216 (Version 2)
Quarter: 2013Q4

REPORT INFORMATION
  Report Type: Spontaneous
  Country: US (occurrence: US)
  Receive Date: 20121213
  Receipt Date: 20131209
  Transmission Date: 20140711
  Serious: Yes (Other)
  Sender: FDA-Public Use
  Company Number: US-BRISTOL-MYERS SQUIBB COMPANY-16710915

PATIENT
  Age: 63 Year
  Sex: Female
  Weight: 117 kg

DRUGS (1)
  1. IXEMPRA [Suspect]
     Indication: BREAST CANCER
     Dosage: DAY 1, DAY 15?45MG:#1G036A
     Route: 042
     Dates: start: 20110707, end: 20120412

REACTIONS (1)
  - Malignant neoplasm progression [Unknown]
